FAERS Safety Report 22370450 (Version 3)
Quarter: 2023Q2

REPORT INFORMATION
  Report Type: Report from Study
  Country: US (occurrence: US)
  Receive Date: 20230526
  Receipt Date: 20230628
  Transmission Date: 20230722
  Serious: Yes (Hospitalization, Other)
  Sender: FDA-Public Use
  Company Number: US-HBP-2023US028870

PATIENT
  Age: 82 Year
  Sex: Male

DRUGS (3)
  1. VALCHLOR [Suspect]
     Active Substance: MECHLORETHAMINE
     Indication: Cutaneous T-cell lymphoma
     Dosage: THIN FILM, QD
     Route: 061
     Dates: start: 20160525
  2. VALCHLOR [Suspect]
     Active Substance: MECHLORETHAMINE
     Dosage: UNK, QD
     Route: 061
     Dates: start: 20230505, end: 202305
  3. VALCHLOR [Suspect]
     Active Substance: MECHLORETHAMINE
     Dosage: UNK, QD
     Route: 061
     Dates: start: 2023

REACTIONS (6)
  - Application site cellulitis [Not Recovered/Not Resolved]
  - Application site scab [Unknown]
  - Application site oedema [Unknown]
  - Purulent discharge [Unknown]
  - Papule [Unknown]
  - Application site erythema [Unknown]

NARRATIVE: CASE EVENT DATE: 20230501
